FAERS Safety Report 9660189 (Version 1)
Quarter: 2013Q4

REPORT INFORMATION
  Report Type: Spontaneous
  Country: US (occurrence: US)
  Receive Date: 20131031
  Receipt Date: 20131031
  Transmission Date: 20140711
  Serious: No
  Sender: FDA-Public Use
  Company Number: US-PURDUE-USA-2010-0061661

PATIENT
  Age: 47 Year
  Sex: Male

DRUGS (2)
  1. OXYCODONE HYDROCHLORIDE (SIMILAR TO NDA 20-553) [Suspect]
     Indication: PAIN
     Dosage: 40 MG, UNKVAIRES SOMETIMES TAKES 3 TABLETS EVERY 8 HOURS, SOMETIMES 5 TABLETS IN MORNING AND 4 AT HS
     Route: 048
     Dates: start: 201009
  2. ACTIQ [Concomitant]
     Indication: BREAKTHROUGH PAIN

REACTIONS (1)
  - Inadequate analgesia [Unknown]
